FAERS Safety Report 10136383 (Version 1)
Quarter: 2014Q2

REPORT INFORMATION
  Report Type: Spontaneous
  Country: GB (occurrence: None)
  Receive Date: 20140425
  Receipt Date: 20140425
  Transmission Date: 20141212
  Serious: Yes (Death, Hospitalization)
  Sender: FDA-Public Use
  Company Number: AUR-APL-2014-04903

PATIENT
  Age: 93 Year
  Sex: Male

DRUGS (8)
  1. NAPROXEN (NAPROXEN) [Suspect]
     Indication: BACK PAIN
     Dosage: 500MG (250 MG, 2 IN 1 D), ORAL
     Route: 048
     Dates: start: 20140123, end: 20140202
  2. CO-CODAMOL (PANADEINE CO) [Concomitant]
  3. ICAPS (MINERALS NOS W/VITAMINS NOS) [Concomitant]
  4. LOSARTAN (LOSARTAN) [Concomitant]
  5. METFORMIN (METFORMIN) [Concomitant]
  6. NIFEDIPINE (NIFEDIPINE) (NIFEDIPINE) [Concomitant]
  7. SIMVASTATIN (SIMVASTATIN) [Concomitant]
  8. TAMSULOSIN (TAMSULOSIN) [Concomitant]

REACTIONS (6)
  - Renal failure acute [None]
  - Gastric haemorrhage [None]
  - Haematemesis [None]
  - Hyperkalaemia [None]
  - Shock [None]
  - Duodenal ulcer [None]
